FAERS Safety Report 11970641 (Version 1)
Quarter: 2016Q1

REPORT INFORMATION
  Report Type: Spontaneous
  Country: US (occurrence: None)
  Receive Date: 20160126
  Receipt Date: 20160126
  Transmission Date: 20160526
  Serious: No
  Sender: FDA-Public Use
  Company Number: None

PATIENT
  Age: 54 Year
  Sex: Female
  Weight: 66.8 kg

DRUGS (1)
  1. WARFARIN [Suspect]
     Active Substance: WARFARIN
     Dosage: MG
     Route: 048

REACTIONS (4)
  - International normalised ratio increased [None]
  - Pain [None]
  - Anal abscess [None]
  - Haemorrhage [None]

NARRATIVE: CASE EVENT DATE: 20150914
